FAERS Safety Report 13967839 (Version 1)
Quarter: 2017Q3

REPORT INFORMATION
  Report Type: Spontaneous
  Country: NL (occurrence: NL)
  Receive Date: 20170914
  Receipt Date: 20170914
  Transmission Date: 20171128
  Serious: Yes (Life-Threatening, Other)
  Sender: FDA-Public Use
  Company Number: NL-AUROBINDO-AUR-APL-2017-07698

PATIENT
  Age: 53 Year
  Sex: Male

DRUGS (2)
  1. NAPROXEN. [Suspect]
     Active Substance: NAPROXEN
     Indication: PRODUCT USED FOR UNKNOWN INDICATION
     Dosage: 500 MG, TWO TIMES A DAY
     Route: 065
  2. SERTRALINE [Suspect]
     Active Substance: SERTRALINE HYDROCHLORIDE
     Indication: DEPRESSION
     Dosage: 100 MG, ONCE A DAY
     Route: 065

REACTIONS (12)
  - Haemorrhagic disorder [Unknown]
  - Obstructive airways disorder [Unknown]
  - Post procedural haemorrhage [Unknown]
  - Haematocrit decreased [Unknown]
  - Platelet disorder [Unknown]
  - Laboratory test abnormal [Unknown]
  - Dyspnoea [Unknown]
  - Haemoglobin decreased [Unknown]
  - Tracheostomy [Unknown]
  - Post procedural haematoma [Unknown]
  - Coagulation factor VIII level abnormal [Unknown]
  - Von Willebrand^s factor multimers abnormal [Unknown]
